FAERS Safety Report 6078393-1 (Version None)
Quarter: 2009Q1

REPORT INFORMATION
  Report Type: 
  Country: None (occurrence: None)
  Receive Date: 20090212
  Receipt Date: 20090130
  Transmission Date: 20090719
  Serious: Yes (Hospitalization)
  Sender: FDA-Public Use
  Company Number: 2009-190675-NL

PATIENT
  Age: 44 Year
  Sex: Female
  Weight: 66.2 kg

DRUGS (7)
  1. NUVARING [Suspect]
     Indication: CONTRACEPTION
     Dosage: 3 WEEKS IN/ 1 WEEK OUT
     Dates: start: 20080101, end: 20080601
  2. K-DUR [Concomitant]
  3. MERCAPTOPURINE [Concomitant]
  4. ALDACTONE [Concomitant]
  5. SYNTHROID [Concomitant]
  6. CYMBALTA [Concomitant]
  7. WELCHOL [Concomitant]

REACTIONS (4)
  - DEEP VEIN THROMBOSIS [None]
  - FALL [None]
  - LOWER LIMB FRACTURE [None]
  - PULMONARY EMBOLISM [None]
